FAERS Safety Report 7720541-9 (Version None)
Quarter: 2011Q3

REPORT INFORMATION
  Report Type: 
  Country: None (occurrence: None)
  Receive Date: 20110831
  Receipt Date: 20110831
  Transmission Date: 20111222
  Serious: Yes (Other)
  Sender: FDA-Public Use
  Company Number: None

PATIENT
  Age: 51 Year
  Sex: Female
  Weight: 128.82 kg

DRUGS (1)
  1. EXENETIDE [Suspect]
     Indication: TYPE 2 DIABETES MELLITUS
     Dosage: BOTH 5 AND 10 MCG DOSE USED
     Route: 058
     Dates: start: 20100719, end: 20101001

REACTIONS (2)
  - COUGH [None]
  - DYSPNOEA EXERTIONAL [None]
